FAERS Safety Report 4316578-2 (Version None)
Quarter: 2004Q1

REPORT INFORMATION
  Report Type: 
  Country: None (occurrence: None)
  Receive Date: 20040312
  Receipt Date: 20040227
  Transmission Date: 20041129
  Serious: Yes (Other)
  Sender: FDA-Public Use
  Company Number: CIO4005462

PATIENT
  Sex: Male

DRUGS (1)
  1. METAMUCIL, VERSION/TEXTURE/FLAVOR UNKNOWN (PSYLLIUM HYDROPHILIC MUCILL [Suspect]
     Dosage: ORAL
     Route: 048

REACTIONS (4)
  - ABDOMINAL PAIN UPPER [None]
  - FEELING ABNORMAL [None]
  - HAEMORRHAGE [None]
  - UNEVALUABLE EVENT [None]
